FAERS Safety Report 14165647 (Version 9)
Quarter: 2018Q3

REPORT INFORMATION
  Report Type: Spontaneous
  Country: FR (occurrence: FR)
  Receive Date: 20171107
  Receipt Date: 20180914
  Transmission Date: 20181010
  Serious: Yes (Death, Life-Threatening, Hospitalization, Other)
  Sender: FDA-Public Use
  Company Number: FR-AUROBINDO-AUR-APL-2017-43400

PATIENT
  Age: 80 Year
  Sex: Female
  Weight: 50 kg

DRUGS (30)
  1. METHOTREXATE. [Concomitant]
     Active Substance: METHOTREXATE
     Dosage: 0.3 MG/KG, QWK
     Route: 065
     Dates: start: 20170911
  2. PREDNISONE ARROW TABLET [Suspect]
     Active Substance: PREDNISONE
     Dosage: 1 DOSAGE FORM, ONCE A DAY
     Route: 048
  3. PARACETAMOL CAPSULE HARD [Suspect]
     Active Substance: ACETAMINOPHEN
     Indication: ANALGESIC THERAPY
     Dosage: 500 MG, QD
     Route: 048
  4. CORDARONE [Suspect]
     Active Substance: AMIODARONE HYDROCHLORIDE
     Indication: ARRHYTHMIA
     Dosage: 1 DF, QD
     Route: 040
     Dates: start: 20170911, end: 20170911
  5. CORDARONE [Suspect]
     Active Substance: AMIODARONE HYDROCHLORIDE
     Indication: ARRHYTHMIA
     Dosage: 1 DF, QD
     Route: 048
  6. ELIQUIS [Suspect]
     Active Substance: APIXABAN
     Indication: PRODUCT USED FOR UNKNOWN INDICATION
     Dosage: 1 DF, QD
     Route: 048
  7. ARIPIPRAZOLE. [Concomitant]
     Active Substance: ARIPIPRAZOLE
     Dosage: UNK ()
     Route: 065
  8. ELIQUIS [Suspect]
     Active Substance: APIXABAN
     Indication: THROMBOSIS PROPHYLAXIS
     Dosage: 1 DF, QD
     Route: 048
     Dates: start: 20170911, end: 20170911
  9. LEVOTHYROX [Suspect]
     Active Substance: LEVOTHYROXINE
     Indication: PRODUCT USED FOR UNKNOWN INDICATION
     Dosage: 1 DF, QD
     Route: 048
  10. METHOTREXATE. [Concomitant]
     Active Substance: METHOTREXATE
     Indication: NEOPLASM
     Dosage: 0.3 MG/KG, QWK
     Route: 065
     Dates: start: 20170801
  11. ARIPIPRAZOLE. [Concomitant]
     Active Substance: ARIPIPRAZOLE
     Dosage: UNK ()
     Route: 065
  12. PARACETAMOL CAPSULE HARD [Suspect]
     Active Substance: ACETAMINOPHEN
     Indication: PAIN
     Dosage: 500 MG, BID
     Route: 040
     Dates: start: 20170911, end: 20170911
  13. CORDARONE [Suspect]
     Active Substance: AMIODARONE HYDROCHLORIDE
     Indication: PRODUCT USED FOR UNKNOWN INDICATION
     Dosage: 1 DF, QD
     Route: 048
  14. DIGOXINE NATIVELLE [Suspect]
     Active Substance: DIGOXIN
     Indication: ARRHYTHMIA
  15. CALCIUM CARBONATE W/COLECALCIFEROL [Suspect]
     Active Substance: CALCIUM CARBONATE\CHOLECALCIFEROL
     Indication: OSTEOPOROSIS PROPHYLAXIS
     Dosage: 1 DF, QD
     Route: 040
     Dates: start: 20170911, end: 20170911
  16. LEVOTHYROX [Suspect]
     Active Substance: LEVOTHYROXINE
     Indication: HYPOTHYROIDISM
     Dosage: 175 ?G, QD
     Route: 040
     Dates: start: 20170911, end: 20170911
  17. ARIPIPRAZOLE. [Concomitant]
     Active Substance: ARIPIPRAZOLE
     Indication: PRODUCT USED FOR UNKNOWN INDICATION
     Dosage: UNK
     Route: 065
  18. PREDNISONE ARROW TABLET [Suspect]
     Active Substance: PREDNISONE
     Indication: DERMATOMYOSITIS
     Dosage: 45 MILLIGRAM, DAILY
     Route: 040
     Dates: start: 20170911, end: 20170911
  19. DIGOXINE NATIVELLE [Suspect]
     Active Substance: DIGOXIN
     Indication: ARRHYTHMIA
     Dosage: 1 DF, QD
     Route: 040
     Dates: start: 20170911, end: 20170911
  20. CORDARONE [Suspect]
     Active Substance: AMIODARONE HYDROCHLORIDE
     Dosage: 1 DF, QD
     Route: 048
  21. FUROSEMIDE ARROW TABLETS [Suspect]
     Active Substance: FUROSEMIDE
     Indication: CARDIAC FAILURE
     Dosage: 20 MILLIGRAM, DAILY
     Route: 048
     Dates: start: 20170911, end: 20170911
  22. CALCIDOSE                          /00944201/ [Suspect]
     Active Substance: CALCIUM CARBONATE\CHOLECALCIFEROL
     Indication: OSTEOPOROSIS PROPHYLAXIS
     Dosage: 1 DF, QD  DAILY
     Route: 040
     Dates: start: 20170911, end: 20170911
  23. CALCIDOSE                          /00944201/ [Suspect]
     Active Substance: CALCIUM CARBONATE\CHOLECALCIFEROL
     Dosage: 1 UNK
     Route: 048
  24. ELIQUIS [Suspect]
     Active Substance: APIXABAN
     Indication: THROMBOSIS PROPHYLAXIS
     Dosage: 1 DF, QD
     Route: 048
     Dates: start: 20170911, end: 20170911
  25. ELIQUIS [Suspect]
     Active Substance: APIXABAN
     Indication: THROMBOSIS PROPHYLAXIS
     Dosage: 1 DF, QD
     Route: 048
  26. LASIX [Suspect]
     Active Substance: FUROSEMIDE
     Indication: CARDIAC FAILURE
     Dosage: 20 MG, QD
     Route: 041
     Dates: start: 20170911, end: 20170911
  27. LASIX [Suspect]
     Active Substance: FUROSEMIDE
     Indication: PRODUCT USED FOR UNKNOWN INDICATION
     Dosage: 20 MG, QD
     Route: 048
  28. LASIX [Suspect]
     Active Substance: FUROSEMIDE
     Dosage: 20 MG, QD
     Route: 048
  29. LEVOTHYROX [Suspect]
     Active Substance: LEVOTHYROXINE
     Dosage: 1 DF, QD
     Route: 048
  30. LEVOTHYROX [Suspect]
     Active Substance: LEVOTHYROXINE
     Dosage: 1 DF, QD
     Route: 048

REACTIONS (5)
  - Incorrect route of drug administration [Fatal]
  - Medication error [Fatal]
  - Off label use [Unknown]
  - Cardiac arrest [Fatal]
  - Cardio-respiratory arrest [Fatal]

NARRATIVE: CASE EVENT DATE: 20170911
